FAERS Safety Report 5955003-2 (Version None)
Quarter: 2008Q4

REPORT INFORMATION
  Report Type: 
  Country: None (occurrence: None)
  Receive Date: 20081112
  Receipt Date: 20081103
  Transmission Date: 20090506
  Serious: No
  Sender: FDA-Public Use
  Company Number: FABR-1000502

PATIENT
  Age: 43 Year

DRUGS (1)
  1. FABRAZYME [Suspect]
     Indication: FABRY'S DISEASE

REACTIONS (4)
  - CHONDROPATHY [None]
  - JOINT INJURY [None]
  - MENISCUS LESION [None]
  - TENDON DISORDER [None]
